FAERS Safety Report 7321370 (Version 8)
Quarter: 2013Q3

REPORT INFORMATION
  Report Type: Spontaneous
  Country: US (occurrence: US)
  Receive Date: 20100316
  Receipt Date: 20130812
  Transmission Date: 20140515
  Serious: Yes (Hospitalization, Other)
  Sender: FDA-Public Use
  Company Number: US-ROCHE-645183

PATIENT
  Age: 14 Year
  Sex: Male
  Weight: 77.1 kg

DRUGS (4)
  1. ACCUTANE [Suspect]
     Indication: ACNE
     Route: 065
     Dates: start: 199709, end: 199812
  2. ACCUTANE [Suspect]
     Route: 065
     Dates: start: 19980802, end: 199812
  3. ACCUTANE [Suspect]
     Route: 065
     Dates: start: 19991123, end: 200002
  4. ACCUTANE [Suspect]
     Route: 065
     Dates: start: 20000906, end: 20001127

REACTIONS (17)
  - Gastrooesophageal reflux disease [Unknown]
  - Crohn^s disease [Unknown]
  - Inflammatory bowel disease [Unknown]
  - Depression [Unknown]
  - Nephrolithiasis [Unknown]
  - Anal fissure [Unknown]
  - Rectal abscess [Unknown]
  - Clostridium difficile colitis [Unknown]
  - Diverticulitis [Unknown]
  - Irritable bowel syndrome [Unknown]
  - Back pain [Unknown]
  - Neck injury [Unknown]
  - Insomnia [Unknown]
  - Lip dry [Recovered/Resolved]
  - Cheilitis [Unknown]
  - Acne [Unknown]
  - Erythema [Unknown]
